FAERS Safety Report 6229329-1 (Version None)
Quarter: 2009Q2

REPORT INFORMATION
  Report Type: 
  Country: None (occurrence: None)
  Receive Date: 20090615
  Receipt Date: 20090605
  Transmission Date: 20091009
  Serious: Yes (Other)
  Sender: FDA-Public Use
  Company Number: RU-AMGEN-UK350940

PATIENT
  Sex: Male

DRUGS (1)
  1. NEULASTIM [Suspect]
     Indication: PRE-EXISTING DISEASE
     Route: 065

REACTIONS (1)
  - THERAPEUTIC RESPONSE DECREASED [None]
